FAERS Safety Report 20461277 (Version 1)
Quarter: 2022Q1

REPORT INFORMATION
  Report Type: Spontaneous
  Country: FR (occurrence: FR)
  Receive Date: 20220211
  Receipt Date: 20220211
  Transmission Date: 20220423
  Serious: Yes (Other)
  Sender: FDA-Public Use
  Company Number: FR-002147023-NVSC2021FR254641

PATIENT
  Age: 24 Year
  Sex: Female

DRUGS (1)
  1. ETHINYL ESTRADIOL\LEVONORGESTREL [Suspect]
     Active Substance: ETHINYL ESTRADIOL\LEVONORGESTREL
     Indication: Oral contraception
     Dosage: 1 DF (EE 20 MICROGRAM/LNG 100 MICROGRAM)
     Route: 065

REACTIONS (3)
  - Contraindicated product administered [Unknown]
  - Transient ischaemic attack [Unknown]
  - Migraine [Recovering/Resolving]
